FAERS Safety Report 15395007 (Version 6)
Quarter: 2019Q1

REPORT INFORMATION
  Report Type: Report from Study
  Country: DE (occurrence: DE)
  Receive Date: 20180918
  Receipt Date: 20190304
  Transmission Date: 20190417
  Serious: Yes (Hospitalization)
  Sender: FDA-Public Use
  Company Number: DE-ROCHE-2184134

PATIENT
  Age: 40 Year
  Sex: Female

DRUGS (10)
  1. OCRELIZUMAB. [Suspect]
     Active Substance: OCRELIZUMAB
     Indication: MULTIPLE SCLEROSIS
     Route: 042
     Dates: start: 20180307, end: 20180322
  2. FENISTIL (GERMANY) [Concomitant]
     Active Substance: DIMETHINDENE MALEATE
     Dosage: ANTIHISTAMINE PREMEDICATION BEFORE OCRELIZUMAB ONLY ON INFUSION DAY
     Route: 042
  3. PREDNISOLUT [Concomitant]
     Active Substance: PREDNISOLONE
     Dosage: PRE-MEDICATION BEFORE OCRELIZUMAB ONLY ON INFUSION DAY
     Route: 042
  4. CITALOPRAM [Concomitant]
     Active Substance: CITALOPRAM HYDROBROMIDE
     Indication: DEPRESSION
     Route: 048
     Dates: start: 20160101
  5. FOLSAN [Concomitant]
     Active Substance: FOLIC ACID
     Indication: FOLATE DEFICIENCY
     Route: 048
     Dates: start: 20000101
  6. VITAMIN B12 [Concomitant]
     Active Substance: CYANOCOBALAMIN
     Indication: VITAMIN B12 DEFICIENCY
     Route: 058
     Dates: start: 20000101
  7. FENISTIL (GERMANY) [Concomitant]
     Active Substance: DIMETHINDENE MALEATE
     Indication: PREMEDICATION
     Dosage: ANTIHISTAMINE PREMEDICATION BEFORE OCRELIZUMAB ONLY ON INFUSION DAY
     Route: 042
     Dates: start: 20180307
  8. IBUPROFEN. [Concomitant]
     Active Substance: IBUPROFEN
     Indication: PREMEDICATION
     Dosage: ANTIPYRETIC,PREMEDICATION BEFORE OCRELIZUMAB ONLY ON INFUSION DAY
     Route: 051
     Dates: start: 20180307
  9. IBUPROFEN. [Concomitant]
     Active Substance: IBUPROFEN
     Dosage: ANTIPYRETIC,PREMEDICATION BEFORE OCRELIZUMAB ONLY ON INFUSION DAY
     Route: 051
  10. PREDNISOLUT [Concomitant]
     Active Substance: PREDNISOLONE
     Indication: PREMEDICATION
     Dosage: PRE-MEDICATION BEFORE OCRELIZUMAB ONLY ON INFUSION DAY
     Route: 042
     Dates: start: 20180307

REACTIONS (1)
  - Cholelithiasis [Recovering/Resolving]

NARRATIVE: CASE EVENT DATE: 20180312
